FAERS Safety Report 17212986 (Version 1)
Quarter: 2019Q4

REPORT INFORMATION
  Report Type: Spontaneous
  Country: US (occurrence: US)
  Receive Date: 20191230
  Receipt Date: 20191230
  Transmission Date: 20200122
  Serious: No
  Sender: FDA-Public Use
  Company Number: US-GLAXOSMITHKLINE-US2019233582

PATIENT
  Sex: Male

DRUGS (1)
  1. EXCEDRIN MIGRAINE [Suspect]
     Active Substance: ACETAMINOPHEN\ASPIRIN\CAFFEINE
     Indication: MIGRAINE
     Dosage: 4 DF, TOOK 4 IN ABOUT 6 HOURS
     Dates: start: 20191220

REACTIONS (3)
  - Inappropriate schedule of product administration [Unknown]
  - Abdominal discomfort [Recovering/Resolving]
  - Overdose [Unknown]
